FAERS Safety Report 9575128 (Version 2)
Quarter: 2013Q4

REPORT INFORMATION
  Report Type: Spontaneous
  Country: FR (occurrence: FR)
  Receive Date: 20131001
  Receipt Date: 20131017
  Transmission Date: 20140711
  Serious: Yes (Death, Hospitalization, Other)
  Sender: FDA-Public Use
  Company Number: FR-PFIZER INC-2013277692

PATIENT
  Age: 72 Year
  Sex: Male
  Weight: 53 kg

DRUGS (12)
  1. MEDROL [Suspect]
     Dosage: UNK
  2. SODIUM PAMIDRONATE RATIOPHARM [Suspect]
     Dosage: 60 MG, DAILY
     Route: 041
     Dates: start: 20121213, end: 20121213
  3. SODIUM PAMIDRONATE RATIOPHARM [Suspect]
     Dosage: 60 MG, DAILY
     Route: 041
     Dates: start: 20130111, end: 20130111
  4. SODIUM PAMIDRONATE RATIOPHARM [Suspect]
     Dosage: 30 MG, DAILY
     Route: 041
     Dates: start: 20130425, end: 20130425
  5. INEXIUM [Suspect]
     Dosage: 20 MG, DAILY
     Route: 048
  6. REVLIMID [Suspect]
     Dosage: 5 MG, DAILY (STRENGTH 5MG)
     Route: 048
  7. TRIATEC [Concomitant]
     Dosage: 5 MG, DAILY
     Route: 048
  8. ARANESP [Concomitant]
     Dosage: 200 UG, WEEKLY (STRENGTH 100UG)
  9. CALCIDIA [Concomitant]
     Dosage: 1 DF, 3X/DAY
  10. DOLIPRANE [Concomitant]
     Dosage: 1000 MG, 3X/DAY
     Route: 048
  11. TARDYFERON [Concomitant]
     Dosage: 80 MG, UNK
     Route: 048
  12. KEPPRA [Concomitant]
     Dosage: 500 MG, DAILY (STRENGTH 250MG)
     Route: 048

REACTIONS (3)
  - Sepsis [Fatal]
  - Subcutaneous abscess [Fatal]
  - Hypocalcaemia [Recovered/Resolved]
